FAERS Safety Report 5637846-8 (Version None)
Quarter: 2008Q1

REPORT INFORMATION
  Report Type: 
  Country: None (occurrence: None)
  Receive Date: 20080220
  Receipt Date: 20080211
  Transmission Date: 20080703
  Serious: Yes (Hospitalization, Other)
  Sender: FDA-Public Use
  Company Number: 2008US000523

PATIENT
  Age: 67 Year
  Sex: Male

DRUGS (6)
  1. PROGRAF [Suspect]
     Indication: RENAL TRANSPLANT
  2. MYCOPHENOLATE MOFETIL [Suspect]
     Indication: RENAL TRANSPLANT
  3. VALGANCICLOVIR HCL [Suspect]
     Indication: ANTIVIRAL PROPHYLAXIS
     Dosage: 900 MG, UID/QD,
  4. THYMOGLOBULIN [Concomitant]
  5. CORTICOSTEROIDS [Concomitant]
  6. AZATHIOPRINE [Concomitant]

REACTIONS (21)
  - BACILLUS INFECTION [None]
  - BACTERIAL INFECTION [None]
  - BLOOD PRESSURE SYSTOLIC INCREASED [None]
  - COMPLICATIONS OF TRANSPLANTED KIDNEY [None]
  - CYTOMEGALOVIRUS INFECTION [None]
  - GINGIVAL ULCERATION [None]
  - IMMUNE SYSTEM DISORDER [None]
  - INFLAMMATION [None]
  - LEUKOPENIA [None]
  - MOUTH ULCERATION [None]
  - NO THERAPEUTIC RESPONSE [None]
  - ORAL CANDIDIASIS [None]
  - ORAL DISORDER [None]
  - ORAL PAIN [None]
  - PURULENCE [None]
  - RENAL FAILURE [None]
  - SWELLING [None]
  - TONGUE DISCOLOURATION [None]
  - TONGUE ULCERATION [None]
  - TRANSPLANT REJECTION [None]
  - WEIGHT DECREASED [None]
